FAERS Safety Report 9364249 (Version 1)
Quarter: 2013Q2

REPORT INFORMATION
  Report Type: Spontaneous
  Country: US (occurrence: None)
  Receive Date: 20130619
  Receipt Date: 20130619
  Transmission Date: 20140414
  Serious: Yes (Other)
  Sender: FDA-Public Use
  Company Number: 1306-775

PATIENT
  Age: 78 Year
  Sex: Male

DRUGS (1)
  1. EYLEA (AFLIBERCEPT) (INJECTION) (AFLIBERCEPT) [Suspect]
     Indication: AGE-RELATED MACULAR DEGENERATION
     Dates: start: 20130507, end: 20130507

REACTIONS (6)
  - Vitritis [None]
  - Eye inflammation [None]
  - Corneal oedema [None]
  - Corneal abrasion [None]
  - Photophobia [None]
  - Retinal haemorrhage [None]
